FAERS Safety Report 20589495 (Version 1)
Quarter: 2022Q1

REPORT INFORMATION
  Report Type: Spontaneous
  Country: CN (occurrence: CN)
  Receive Date: 20220314
  Receipt Date: 20220314
  Transmission Date: 20220423
  Serious: Yes (Other)
  Sender: FDA-Public Use
  Company Number: CN-JNJFOC-20220325275

PATIENT
  Age: 4 Year
  Sex: Male
  Weight: 20 kg

DRUGS (1)
  1. CHILDRENS MOTRIN [Suspect]
     Active Substance: IBUPROFEN
     Indication: Respiratory disorder
     Route: 048
     Dates: start: 20220308, end: 20220308

REACTIONS (2)
  - Gastrointestinal disorder [Recovering/Resolving]
  - Urticaria [Recovering/Resolving]

NARRATIVE: CASE EVENT DATE: 20220308
